FAERS Safety Report 23770827 (Version 1)
Quarter: 2024Q2

REPORT INFORMATION
  Report Type: Spontaneous
  Country: US (occurrence: US)
  Receive Date: 20240422
  Receipt Date: 20240422
  Transmission Date: 20240716
  Serious: No
  Sender: FDA-Public Use
  Company Number: US-ABBVIE-5729333

PATIENT

DRUGS (1)
  1. KYBELLA [Suspect]
     Active Substance: DEOXYCHOLIC ACID
     Indication: Fat tissue increased
     Dosage: TIME INTERVAL: AS NECESSARY
     Route: 058
     Dates: start: 202404, end: 202404

REACTIONS (2)
  - Injection site papule [Unknown]
  - Injection site induration [Unknown]

NARRATIVE: CASE EVENT DATE: 20240401
